FAERS Safety Report 16978138 (Version 2)
Quarter: 2020Q1

REPORT INFORMATION
  Report Type: Spontaneous
  Country: GB (occurrence: GB)
  Receive Date: 20191031
  Receipt Date: 20200327
  Transmission Date: 20200409
  Serious: Yes (Death, Hospitalization)
  Sender: FDA-Public Use
  Company Number: GB-TEVA-2019-GB-1129193

PATIENT
  Sex: Female
  Weight: 86 kg

DRUGS (3)
  1. LANSOPRAZOLE. [Concomitant]
     Active Substance: LANSOPRAZOLE
     Dosage: 15 MG
  2. FUROSEMIDE. [Concomitant]
     Active Substance: FUROSEMIDE
     Indication: OEDEMA PERIPHERAL
     Dates: start: 20170418
  3. NAPROXEN. [Suspect]
     Active Substance: NAPROXEN
     Indication: GOUT
     Dosage: 500 MG
     Route: 065
     Dates: start: 20170320

REACTIONS (14)
  - Tumour haemorrhage [Fatal]
  - Peripheral circulatory failure [Fatal]
  - Melaena [Fatal]
  - Hypovolaemic shock [Fatal]
  - Anaemia [Fatal]
  - Drug interaction [Fatal]
  - Arthralgia [Fatal]
  - Multiple organ dysfunction syndrome [Fatal]
  - Cardiac arrest [Fatal]
  - Upper gastrointestinal haemorrhage [Fatal]
  - Coagulopathy [Fatal]
  - Hypotension [Fatal]
  - Diarrhoea haemorrhagic [Fatal]
  - Back pain [Fatal]

NARRATIVE: CASE EVENT DATE: 20170401
